FAERS Safety Report 4599984-0 (Version None)
Quarter: 2005Q1

REPORT INFORMATION
  Report Type: 
  Country: None (occurrence: None)
  Receive Date: 20050307
  Receipt Date: 20050223
  Transmission Date: 20050727
  Serious: Yes (Other)
  Sender: FDA-Public Use
  Company Number: US-GLAXOSMITHKLINE-A0547346A

PATIENT
  Age: 76 Year
  Sex: Female

DRUGS (1)
  1. PHAZYME QUICK DISSOLVE CHEWABLE TABLETS [Suspect]
     Indication: FLATULENCE
     Route: 048

REACTIONS (4)
  - FAECAL INCONTINENCE [None]
  - FLATULENCE [None]
  - PROCTALGIA [None]
  - PRURITUS [None]
